FAERS Safety Report 4353172-1 (Version None)
Quarter: 2004Q2

REPORT INFORMATION
  Report Type: 
  Country: None (occurrence: None)
  Receive Date: 20040504
  Receipt Date: 20040504
  Transmission Date: 20050107
  Serious: No
  Sender: FDA-Public Use
  Company Number: None

PATIENT
  Age: 34 Year
  Sex: Male
  Weight: 56.6996 kg

DRUGS (3)
  1. DURAGESIC [Suspect]
     Indication: PAIN
     Dosage: 75 MCG/HR CUT
     Route: 003
     Dates: start: 20040331, end: 20040405
  2. DILANDID [Concomitant]
  3. NEURONTIN [Concomitant]

REACTIONS (2)
  - CONVULSION [None]
  - HALLUCINATION [None]
